FAERS Safety Report 4272828-2 (Version None)
Quarter: 2004Q1

REPORT INFORMATION
  Report Type: 
  Country: None (occurrence: None)
  Receive Date: 20040114
  Receipt Date: 20040102
  Transmission Date: 20041129
  Serious: Yes (Other)
  Sender: FDA-Public Use
  Company Number: 2003123684

PATIENT
  Age: 78 Year
  Sex: Male
  Weight: 99.7913 kg

DRUGS (4)
  1. ZOLOFT [Suspect]
     Indication: DEPRESSION
     Dosage: 100 MG (DAILY), ORAL
     Route: 048
  2. NIMESULIDE (NIMESULIDE) [Concomitant]
  3. METOPROLOL SUCCINATE [Concomitant]
  4. GEMFIBROZIL [Concomitant]

REACTIONS (6)
  - BALANCE DISORDER [None]
  - DEPRESSION [None]
  - DIFFICULTY IN WALKING [None]
  - FALL [None]
  - FEELING ABNORMAL [None]
  - QUADRUPLE VESSEL BYPASS GRAFT [None]
